FAERS Safety Report 5945015-7 (Version None)
Quarter: 2008Q4

REPORT INFORMATION
  Report Type: 
  Country: None (occurrence: None)
  Receive Date: 20081107
  Receipt Date: 20080618
  Transmission Date: 20090506
  Serious: Yes (Hospitalization)
  Sender: FDA-Public Use
  Company Number: US-MERCK-0705USA05582

PATIENT
  Age: 70 Year
  Sex: Female

DRUGS (2)
  1. FOSAMAX [Suspect]
     Indication: OSTEOPOROSIS
     Route: 048
     Dates: start: 20010101, end: 20060501
  2. FOSAMAX PLUS D [Concomitant]
     Indication: OSTEOPOROSIS
     Route: 065

REACTIONS (24)
  - ADVERSE EVENT [None]
  - ARTHRALGIA [None]
  - CARPAL TUNNEL SYNDROME [None]
  - COUGH [None]
  - DEHYDRATION [None]
  - DENTAL NECROSIS [None]
  - HAEMORRHAGE [None]
  - HYPERTENSION [None]
  - HYPONATRAEMIA [None]
  - MASTICATION DISORDER [None]
  - OESOPHAGEAL DISORDER [None]
  - ORAL DISORDER [None]
  - OSTEOPOROSIS [None]
  - OTITIS MEDIA [None]
  - PAIN IN JAW [None]
  - PNEUMONIA KLEBSIELLA [None]
  - POLYARTHRITIS [None]
  - RESORPTION BONE INCREASED [None]
  - SPINAL FRACTURE [None]
  - SWELLING [None]
  - TOOTH LOSS [None]
  - TOOTHACHE [None]
  - URINARY TRACT INFECTION [None]
  - VERTIGO POSITIONAL [None]
